FAERS Safety Report 14202598 (Version 1)
Quarter: 2017Q4

REPORT INFORMATION
  Report Type: Spontaneous
  Country: GB (occurrence: GB)
  Receive Date: 20171118
  Receipt Date: 20171118
  Transmission Date: 20180321
  Serious: Yes (Death, Life-Threatening, Other)
  Sender: FDA-Public Use
  Company Number: GB-INTERNATIONAL MEDICATION SYSTEMS, LIMITED-2034579

PATIENT
  Age: 70 Year
  Sex: Male

DRUGS (7)
  1. ADRENALIN [Suspect]
     Active Substance: EPINEPHRINE
     Indication: ANAPHYLACTIC REACTION
     Route: 042
     Dates: start: 20070826, end: 20070826
  2. EPIPEN [Suspect]
     Active Substance: EPINEPHRINE
     Route: 030
     Dates: start: 20070826, end: 20070826
  3. ADRENALIN [Suspect]
     Active Substance: EPINEPHRINE
  4. EPIPEN [Suspect]
     Active Substance: EPINEPHRINE
     Route: 030
     Dates: start: 20070826, end: 20070826
  5. EPIPEN [Suspect]
     Active Substance: EPINEPHRINE
     Route: 030
     Dates: start: 20070826, end: 20070826
  6. EPIPEN [Suspect]
     Active Substance: EPINEPHRINE
     Route: 030
     Dates: start: 20070826, end: 20070826
  7. EPIPEN [Suspect]
     Active Substance: EPINEPHRINE
     Route: 030
     Dates: start: 20070826, end: 20070826

REACTIONS (4)
  - Drug ineffective [Fatal]
  - Death [Fatal]
  - Pulse absent [Fatal]
  - Cardiac arrest [Fatal]

NARRATIVE: CASE EVENT DATE: 20070826
